FAERS Safety Report 14615632 (Version 1)
Quarter: 2018Q1

REPORT INFORMATION
  Report Type: Spontaneous
  Country: US (occurrence: US)
  Receive Date: 20180309
  Receipt Date: 20180309
  Transmission Date: 20180509
  Serious: No
  Sender: FDA-Public Use
  Company Number: US-LUPIN PHARMACEUTICALS INC.-2017-07424

PATIENT
  Age: 8 Year

DRUGS (1)
  1. AZITHROMYCIN TABLETS [Suspect]
     Active Substance: AZITHROMYCIN ANHYDROUS
     Indication: EAR INFECTION
     Dosage: UNK
     Route: 065

REACTIONS (2)
  - Ear infection [Not Recovered/Not Resolved]
  - Drug ineffective [Unknown]
